FAERS Safety Report 8538335-3 (Version None)
Quarter: 2012Q3

REPORT INFORMATION
  Report Type: 
  Country: None (occurrence: None)
  Receive Date: 20120726
  Receipt Date: 20120717
  Transmission Date: 20120928
  Serious: Yes (Other)
  Sender: FDA-Public Use
  Company Number: FR-MSD-2012SP035132

PATIENT

DRUGS (5)
  1. VICTRELIS [Suspect]
     Indication: HEPATITIS C
     Dosage: 800 MG, TID
     Dates: start: 20110926
  2. VIRAFERONPEG [Suspect]
     Indication: HEPATITIS C
     Dosage: 100 ?G, QW
     Dates: start: 20110825
  3. REBETOL [Suspect]
     Indication: HEPATITIS C
     Dosage: 200 MG, BID
     Dates: start: 20110825
  4. NEORECORMON [Concomitant]
     Indication: ANAEMIA
     Dosage: 30000 IU, BID
     Dates: start: 20111012
  5. NEUPOGEN [Concomitant]
     Indication: NEUTROPENIA
     Dosage: 30000 IU, QW
     Dates: start: 20110826

REACTIONS (1)
  - THROMBOCYTOPENIA [None]
